FAERS Safety Report 15862220 (Version 2)
Quarter: 2019Q1

REPORT INFORMATION
  Report Type: Spontaneous
  Country: CA (occurrence: CA)
  Receive Date: 20190124
  Receipt Date: 20190205
  Transmission Date: 20190417
  Serious: Yes (Hospitalization, Other)
  Sender: FDA-Public Use
  Company Number: CA-AMGEN-CANSP2019008094

PATIENT
  Age: 73 Year
  Sex: Female
  Weight: 62 kg

DRUGS (13)
  1. PROLIA [Suspect]
     Active Substance: DENOSUMAB
     Indication: OSTEOPOROSIS POSTMENOPAUSAL
     Dosage: 60 MG, Q6MO
     Route: 058
     Dates: start: 20170809
  2. KEPPRA [Concomitant]
     Active Substance: LEVETIRACETAM
     Indication: DEVICE MALFUNCTION
     Dosage: 500 MG, BID
  3. NITROGLYCERIN. [Concomitant]
     Active Substance: NITROGLYCERIN
     Indication: CORONARY ARTERY DISEASE
     Dosage: 0.4 MG, UNK
  4. RAMIPRIL. [Concomitant]
     Active Substance: RAMIPRIL
     Indication: CORONARY ARTERY DISEASE
     Dosage: 1.25 MG, QD
  5. SYNTHROID [Concomitant]
     Active Substance: LEVOTHYROXINE SODIUM
     Indication: HYPOTHYROIDISM
     Dosage: 0.025 MG, QD
     Route: 048
  6. INFLUENZA [Concomitant]
     Active Substance: INFLUENZA VIRUS VACCINE
     Dosage: UNK
     Dates: start: 20181121
  7. SINGRIPS [Concomitant]
     Dosage: UNK
     Dates: start: 20180904
  8. PNEUMOVAX 23 [Concomitant]
     Active Substance: PNEUMOCOCCAL VACCINE, POLYVALENT 23
     Dosage: UNK
     Dates: start: 20180208
  9. VITAMIN D [Concomitant]
     Active Substance: CHOLECALCIFEROL
     Indication: OSTEOPOROSIS
     Dosage: 1000 IU, BID
     Route: 048
  10. ATORVASTATIN [Concomitant]
     Active Substance: ATORVASTATIN
     Indication: CORONARY ARTERY DISEASE
     Dosage: 80 MG, QD
  11. RABEPRAZOLE [Concomitant]
     Active Substance: RABEPRAZOLE
     Indication: GASTROOESOPHAGEAL REFLUX DISEASE
     Dosage: 20 MG, QD
  12. ASPIRIN 81 [Concomitant]
     Active Substance: ASPIRIN
     Indication: CORONARY ARTERY DISEASE
     Dosage: 81 MG, BID
     Route: 048
  13. TRAZODONE [Concomitant]
     Active Substance: TRAZODONE HYDROCHLORIDE
     Indication: INSOMNIA
     Dosage: 50 MG, UNK
     Route: 048

REACTIONS (4)
  - Fall [Unknown]
  - Aortic valve incompetence [Unknown]
  - Pubis fracture [Unknown]
  - Mobility decreased [Unknown]

NARRATIVE: CASE EVENT DATE: 201710
